FAERS Safety Report 4368928-9 (Version None)
Quarter: 2004Q2

REPORT INFORMATION
  Report Type: 
  Country: None (occurrence: None)
  Receive Date: 20040525
  Receipt Date: 20040514
  Transmission Date: 20050107
  Serious: Yes (Other)
  Sender: FDA-Public Use
  Company Number: 2004033464

PATIENT
  Age: 48 Year
  Sex: Male
  Weight: 82.5547 kg

DRUGS (2)
  1. NICOTROL [Suspect]
     Indication: SMOKING CESSATION THERAPY
     Dosage: 1 SPRAY EACH NOSTRIL 10 TIMES A DAY, NASAL
     Route: 045
     Dates: start: 20040101
  2. ALPRAZOLAM [Concomitant]

REACTIONS (1)
  - CATARACT [None]
